FAERS Safety Report 24565741 (Version 1)
Quarter: 2024Q4

REPORT INFORMATION
  Report Type: Spontaneous
  Country: JP (occurrence: JP)
  Receive Date: 20241030
  Receipt Date: 20241030
  Transmission Date: 20250115
  Serious: Yes (Life-Threatening, Hospitalization, Other)
  Sender: AMGEN
  Company Number: JP-DSJP-DS-2024-104898-

PATIENT
  Age: 50 Year
  Sex: Male

DRUGS (2)
  1. DENOSUMAB [Suspect]
     Active Substance: DENOSUMAB
     Indication: Angiosarcoma
     Dosage: UNK
     Route: 065
  2. ERIBULIN MESYLATE [Concomitant]
     Active Substance: ERIBULIN MESYLATE
     Indication: Angiosarcoma
     Dosage: UNK
     Route: 065

REACTIONS (6)
  - Cerebral haemorrhage [Recovered/Resolved]
  - Cerebral haematoma [Recovered/Resolved]
  - Metastases to spine [Recovered/Resolved]
  - Metastases to central nervous system [Recovered/Resolved]
  - Deep vein thrombosis [Recovered/Resolved]
  - Off label use [Unknown]
